FAERS Safety Report 17473403 (Version 1)
Quarter: 2020Q1

REPORT INFORMATION
  Report Type: Spontaneous
  Country: NL (occurrence: LU)
  Receive Date: 20200228
  Receipt Date: 20200228
  Transmission Date: 20200409
  Serious: Yes (Life-Threatening, Hospitalization)
  Sender: FDA-Public Use
  Company Number: LU-FRESENIUS KABI-FK202001888

PATIENT
  Age: 57 Year
  Sex: Female
  Weight: 108 kg

DRUGS (6)
  1. REMIFENTANIL [Suspect]
     Active Substance: REMIFENTANIL
     Indication: INDUCTION OF ANAESTHESIA
     Dosage: UNKNOWN DOSAGE
     Route: 042
     Dates: end: 20200130
  2. ROCURONIUM [Suspect]
     Active Substance: ROCURONIUM BROMIDE
     Indication: INDUCTION OF ANAESTHESIA
     Route: 042
  3. CEFAZOLIN SODIUM. [Suspect]
     Active Substance: CEFAZOLIN SODIUM
     Indication: ANTIBIOTIC PROPHYLAXIS
     Route: 042
  4. PROPOFOL (MANUFACTURER UNKNOWN) [Suspect]
     Active Substance: PROPOFOL
     Indication: INDUCTION OF ANAESTHESIA
     Route: 042
  5. LIDOCAINE. [Suspect]
     Active Substance: LIDOCAINE
     Indication: INDUCTION OF ANAESTHESIA
     Route: 042
  6. SODIUM LACTATE/POTASSIUM CHLORIDE/SODIUM CHLORIDE/MAGNESIUM CHLORIDE/CALCIUM CHLORIDE DIHYDRATE [Concomitant]
     Indication: INDUCTION OF ANAESTHESIA
     Route: 042
     Dates: end: 20200130

REACTIONS (1)
  - Anaphylactic shock [Recovering/Resolving]

NARRATIVE: CASE EVENT DATE: 20200130
